FAERS Safety Report 7920629-3 (Version None)
Quarter: 2011Q4

REPORT INFORMATION
  Report Type: 
  Country: None (occurrence: None)
  Receive Date: 20111117
  Receipt Date: 20111111
  Transmission Date: 20120403
  Serious: Yes (Other)
  Sender: FDA-Public Use
  Company Number: AT-AMGEN-AUTSP2011045298

PATIENT
  Sex: Male

DRUGS (1)
  1. ARANESP [Suspect]
     Indication: ANAEMIA OF MALIGNANT DISEASE
     Dosage: 300 MUG, UNK

REACTIONS (2)
  - MEDICATION ERROR [None]
  - LEUKAEMIA [None]
